FAERS Safety Report 9466297 (Version 2)
Quarter: 2013Q3

REPORT INFORMATION
  Report Type: Spontaneous
  Country: BR (occurrence: BR)
  Receive Date: 20130820
  Receipt Date: 20130820
  Transmission Date: 20140515
  Serious: Yes (Death, Other)
  Sender: FDA-Public Use
  Company Number: BR-PFIZER INC-2013221185

PATIENT
  Age: 71 Year
  Sex: Male
  Weight: 65 kg

DRUGS (1)
  1. SUTENT [Suspect]
     Indication: RENAL CELL CARCINOMA
     Dosage: 50 MG, CYCLIC, 1X/DAY
     Route: 048
     Dates: start: 20130725

REACTIONS (4)
  - Death [Fatal]
  - Haematemesis [Unknown]
  - Nasopharyngitis [Unknown]
  - Pain [Recovering/Resolving]
